FAERS Safety Report 8619739-7 (Version None)
Quarter: 2012Q3

REPORT INFORMATION
  Report Type: 
  Country: None (occurrence: None)
  Receive Date: 20120824
  Receipt Date: 20120815
  Transmission Date: 20120928
  Serious: Yes (Hospitalization, Disabling, Other)
  Sender: FDA-Public Use
  Company Number: US-009507513-1206USA04942

PATIENT

DRUGS (6)
  1. ACTONEL [Suspect]
     Indication: OSTEOPENIA
  2. BONIVA [Suspect]
     Indication: OSTEOPENIA
  3. FOSAMAX [Suspect]
     Indication: OSTEOPENIA
     Dosage: 70 MG, UNK
     Route: 048
     Dates: start: 20000101, end: 20080101
  4. PRILOSEC OTC [Concomitant]
     Indication: PRODUCT USED FOR UNKNOWN INDICATION
     Dosage: 20 MG, BID
     Route: 048
     Dates: start: 19950101, end: 20120310
  5. BONIVA [Suspect]
     Indication: OSTEOPOROSIS
  6. FOSAMAX [Suspect]
     Indication: OSTEOPOROSIS

REACTIONS (19)
  - LOW TURNOVER OSTEOPATHY [None]
  - DEPRESSION [None]
  - BUNION OPERATION [None]
  - STRESS FRACTURE [None]
  - SALPINGO-OOPHORECTOMY [None]
  - OPEN REDUCTION OF FRACTURE [None]
  - HYPOCALCAEMIA [None]
  - FOOT OPERATION [None]
  - FEMUR FRACTURE [None]
  - ATYPICAL FEMUR FRACTURE [None]
  - DRUG INTOLERANCE [None]
  - ANXIETY [None]
  - BURSITIS [None]
  - CHOLESTEATOMA REMOVAL [None]
  - OSTEOPOROSIS [None]
  - HYPOPARATHYROIDISM [None]
  - CHOLESTEATOMA [None]
  - BIOPSY BREAST NORMAL [None]
  - JOINT ARTHROPLASTY [None]
